FAERS Safety Report 18147454 (Version 3)
Quarter: 2020Q3

REPORT INFORMATION
  Report Type: Spontaneous
  Country: US (occurrence: US)
  Receive Date: 20200814
  Receipt Date: 20200922
  Transmission Date: 20201103
  Serious: Yes (Other)
  Sender: FDA-Public Use
  Company Number: US-HORIZON-TEP-1326-2020

PATIENT
  Age: 54 Year
  Sex: Male
  Weight: 108.59 kg

DRUGS (11)
  1. HUMALOG KWIKPEN [Concomitant]
     Active Substance: INSULIN LISPRO
  2. METHIMAZOLE. [Concomitant]
     Active Substance: METHIMAZOLE
  3. TEPEZZA [Suspect]
     Active Substance: TEPROTUMUMAB-TRBW
     Indication: ENDOCRINE OPHTHALMOPATHY
     Dosage: 4 VIALS (500MG/VIAL) Q3WEEKS
     Route: 042
  4. TIZANIDINE HCL [Concomitant]
     Active Substance: TIZANIDINE HYDROCHLORIDE
  5. ATORVASTATIN CALCIUM. [Concomitant]
     Active Substance: ATORVASTATIN CALCIUM
  6. IRON 325 [Concomitant]
  7. SODIUM CHLORIDE 0.9% [Concomitant]
     Active Substance: SODIUM CHLORIDE
  8. VITAMIN D3 [Concomitant]
     Active Substance: CHOLECALCIFEROL
  9. CREON [Concomitant]
     Active Substance: PANCRELIPASE AMYLASE\PANCRELIPASE LIPASE\PANCRELIPASE PROTEASE
  10. FENOFIBRATE. [Concomitant]
     Active Substance: FENOFIBRATE
  11. PREGABALIN. [Concomitant]
     Active Substance: PREGABALIN

REACTIONS (7)
  - Dehydration [Unknown]
  - Alopecia [Not Recovered/Not Resolved]
  - Glycosylated haemoglobin increased [Unknown]
  - Dizziness [Recovered/Resolved]
  - Lower respiratory tract infection bacterial [Recovered/Resolved]
  - Blood glucose increased [Unknown]
  - Fall [Recovered/Resolved]

NARRATIVE: CASE EVENT DATE: 20200805
